FAERS Safety Report 19711147 (Version 1)
Quarter: 2021Q3

REPORT INFORMATION
  Report Type: Spontaneous
  Country: FR (occurrence: FR)
  Receive Date: 20210817
  Receipt Date: 20210817
  Transmission Date: 20211014
  Serious: Yes (Life-Threatening, Other)
  Sender: FDA-Public Use
  Company Number: FR-MYLANLABS-2021M1051760

PATIENT
  Age: 69 Year
  Sex: Male
  Weight: 100 kg

DRUGS (10)
  1. KETAMINE RENAUDIN [Suspect]
     Active Substance: KETAMINE
     Indication: INDUCTION OF ANAESTHESIA
     Dosage: 20 MILLIGRAM, QD
     Route: 042
     Dates: start: 20210204, end: 20210204
  2. NEFOPAM [Suspect]
     Active Substance: NEFOPAM
     Indication: PAIN
     Dosage: 20 MILLIGRAM, QD
     Route: 042
     Dates: start: 20210204, end: 20210204
  3. CEFAZOLIN [Suspect]
     Active Substance: CEFAZOLIN
     Indication: PROPHYLAXIS
     Dosage: 4 GRAM, QD
     Route: 042
     Dates: start: 20210204, end: 20210204
  4. DEXAMETHASONE MYLAN [Suspect]
     Active Substance: DEXAMETHASONE
     Indication: PROPHYLAXIS
     Dosage: 8 MILLIGRAM, QD
     Route: 042
     Dates: start: 20210204, end: 20210204
  5. NAROPEINE [Suspect]
     Active Substance: ROPIVACAINE HYDROCHLORIDE
     Indication: PRODUCT USED FOR UNKNOWN INDICATION
     Dosage: UNK
     Route: 042
     Dates: start: 20210204, end: 20210204
  6. PROPOFOL LIPURO [Suspect]
     Active Substance: PROPOFOL
     Indication: INDUCTION OF ANAESTHESIA
     Dosage: 300 MILLIGRAM, QD
     Route: 042
     Dates: start: 20210204, end: 20210204
  7. ATRACURIUM HOSPIRA [Suspect]
     Active Substance: ATRACURIUM BESYLATE
     Indication: INDUCTION OF ANAESTHESIA
     Dosage: 80 MILLIGRAM, QD
     Route: 042
     Dates: start: 20210204, end: 20210204
  8. SUFENTANIL [Suspect]
     Active Substance: SUFENTANIL
     Indication: INDUCTION OF ANAESTHESIA
     Dosage: 35 MICROGRAM, QD
     Route: 042
     Dates: start: 20210204, end: 20210204
  9. EXACYL [Suspect]
     Active Substance: TRANEXAMIC ACID
     Indication: HAEMORRHAGE PROPHYLAXIS
     Dosage: 2 GRAM, QD
     Route: 042
     Dates: start: 20210204, end: 20210204
  10. PERFALGAN [Suspect]
     Active Substance: ACETAMINOPHEN
     Indication: PAIN
     Dosage: 1 GRAM, QD
     Route: 042
     Dates: start: 20210204, end: 20210204

REACTIONS (1)
  - Anaphylactic shock [Recovered/Resolved]

NARRATIVE: CASE EVENT DATE: 20210204
